FAERS Safety Report 14618148 (Version 1)
Quarter: 2018Q1

REPORT INFORMATION
  Report Type: Spontaneous
  Country: US (occurrence: US)
  Receive Date: 20180309
  Receipt Date: 20180309
  Transmission Date: 20180509
  Serious: No
  Sender: FDA-Public Use
  Company Number: US-TARO-2017TAR00992

PATIENT
  Age: 70 Year
  Sex: Female
  Weight: 79.37 kg

DRUGS (5)
  1. UNKNOWN MEDICATION FOR THYROID [Concomitant]
  2. UNKNOWN MEDICATION FOR BLOOD PRESSURE [Concomitant]
  3. UNKNOWN BLOOD THINNER [Concomitant]
     Active Substance: UNSPECIFIED INGREDIENT
  4. UNKNOWN MEDICATION FOR CHOLESTEROL [Concomitant]
  5. NYSTATIN CREAM [Suspect]
     Active Substance: NYSTATIN
     Indication: FUNGAL INFECTION
     Dosage: UNK, UNK
     Dates: start: 20171104

REACTIONS (1)
  - Drug effect incomplete [Not Recovered/Not Resolved]

NARRATIVE: CASE EVENT DATE: 20171104
